FAERS Safety Report 4515344-2 (Version None)
Quarter: 2004Q4

REPORT INFORMATION
  Report Type: 
  Country: None (occurrence: None)
  Receive Date: 20041029
  Receipt Date: 20040902
  Transmission Date: 20050328
  Serious: No
  Sender: FDA-Public Use
  Company Number: 200416652US

PATIENT
  Age: 58 Year
  Sex: Female

DRUGS (6)
  1. KETEK [Suspect]
     Indication: COUGH
     Dosage: 800 MG, QD, PO
     Route: 048
     Dates: start: 20040820, end: 20040822
  2. KETEK [Suspect]
     Indication: HEADACHE
     Dosage: 800 MG, QD, PO
     Route: 048
     Dates: start: 20040820, end: 20040822
  3. KETEK [Suspect]
     Indication: SINUSITIS
     Dosage: 800 MG, QD, PO
     Route: 048
     Dates: start: 20040820, end: 20040822
  4. KETEK [Suspect]
     Indication: WHEEZING
     Dosage: 800 MG, QD, PO
     Route: 048
     Dates: start: 20040820, end: 20040822
  5. IPATROPIUM BROMIDE [Concomitant]
  6. SALBUTAMOL SULFATE (COMBIVENT) [Concomitant]

REACTIONS (6)
  - BACK PAIN [None]
  - BURNING SENSATION [None]
  - DRY MOUTH [None]
  - DYSPNOEA [None]
  - PLEURITIC PAIN [None]
  - PRODUCTIVE COUGH [None]
